FAERS Safety Report 13008384 (Version 2)
Quarter: 2017Q1

REPORT INFORMATION
  Report Type: Spontaneous
  Country: AU (occurrence: AU)
  Receive Date: 20161208
  Receipt Date: 20170104
  Transmission Date: 20170428
  Serious: Yes (Other)
  Sender: FDA-Public Use
  Company Number: AU-SUN PHARMACEUTICAL INDUSTRIES LTD-2016RR-128977

PATIENT
  Age: 21 Year
  Sex: Female
  Weight: 60 kg

DRUGS (1)
  1. PARACETAMOL [Suspect]
     Active Substance: ACETAMINOPHEN
     Indication: PRODUCT USED FOR UNKNOWN INDICATION
     Dosage: A POTENTIAL CONSUMPTION OF 239 G (3900 MG/KG) OF IMMEDIATE-RELEASE PARACETAMOL
     Route: 065

REACTIONS (9)
  - Pancytopenia [Recovering/Resolving]
  - Hypothermia [Recovering/Resolving]
  - Agitation [Recovering/Resolving]
  - Metabolic acidosis [Recovering/Resolving]
  - Confusional state [Recovering/Resolving]
  - Altered state of consciousness [Recovering/Resolving]
  - Mitochondrial toxicity [Recovering/Resolving]
  - Overdose [Recovering/Resolving]
  - Hyperglycaemia [Recovering/Resolving]
